FAERS Safety Report 8886307 (Version 2)
Quarter: 2012Q4

REPORT INFORMATION
  Report Type: 
  Country: JP (occurrence: JP)
  Receive Date: 20121105
  Receipt Date: 20121123
  Transmission Date: 20130627
  Serious: Yes (Other)
  Sender: FDA-Public Use
  Company Number: PHHY2012JP096235

PATIENT
  Age: 78 Year
  Sex: Female
  Weight: 149 kg

DRUGS (4)
  1. VOLTAREN [Suspect]
     Indication: TOOTHACHE
     Dosage: 25 mg, BID
     Route: 048
     Dates: start: 20121009
  2. VOLTAREN [Suspect]
     Dosage: 25 mg, BID
     Route: 048
     Dates: start: 20121012
  3. VOLTAREN [Suspect]
     Dosage: 25 mg, BID
     Route: 048
     Dates: start: 20121015
  4. FLOMOX [Concomitant]
     Dosage: 100 mg, for 3 days
     Route: 048
     Dates: start: 20121008

REACTIONS (8)
  - Gastric cancer [Unknown]
  - Dehydration [Unknown]
  - Gastric ulcer haemorrhage [Unknown]
  - Gastrooesophageal reflux disease [Unknown]
  - Aphagia [Unknown]
  - Abdominal pain upper [Unknown]
  - Periarthritis [Unknown]
  - Toothache [None]
